FAERS Safety Report 24317550 (Version 2)
Quarter: 2024Q4

REPORT INFORMATION
  Report Type: Report from Study
  Country: US (occurrence: US)
  Receive Date: 20240913
  Receipt Date: 20241111
  Transmission Date: 20250115
  Serious: Yes (Other)
  Sender: ABBVIE
  Company Number: US-ABBVIE-5918844

PATIENT
  Sex: Male

DRUGS (1)
  1. SKYRIZI [Suspect]
     Active Substance: RISANKIZUMAB-RZAA
     Indication: Psoriasis
     Route: 058
     Dates: start: 20220927

REACTIONS (4)
  - Nail psoriasis [Not Recovered/Not Resolved]
  - Skin lesion [Recovered/Resolved]
  - Psoriasis [Recovering/Resolving]
  - Arthralgia [Recovering/Resolving]
